FAERS Safety Report 6317229-8 (Version None)
Quarter: 2009Q3

REPORT INFORMATION
  Report Type: 
  Country: None (occurrence: None)
  Receive Date: 20090819
  Receipt Date: 20090805
  Transmission Date: 20100115
  Serious: Yes (Death)
  Sender: FDA-Public Use
  Company Number: KV200900719

PATIENT
  Age: 64 Year
  Sex: Female

DRUGS (5)
  1. MORPHINE SULFATE [Suspect]
     Indication: PAIN
     Dosage: 15 MG, ORAL
     Route: 048
     Dates: start: 20080901
  2. MORPHINE SULFATE [Suspect]
     Indication: PAIN
     Dosage: ORAL
     Route: 048
     Dates: start: 20080901
  3. MUCINEX [Concomitant]
  4. ALBUTEROL [Concomitant]
  5. STOOL SOFTENER (DOCUSATE SODIUM) [Concomitant]

REACTIONS (1)
  - DEATH [None]
